FAERS Safety Report 4462457-X (Version None)
Quarter: 2004Q3

REPORT INFORMATION
  Report Type: 
  Country: None (occurrence: None)
  Receive Date: 20040924
  Receipt Date: 20040909
  Transmission Date: 20050211
  Serious: Yes (Hospitalization)
  Sender: FDA-Public Use
  Company Number: 204488

PATIENT
  Age: 52 Year
  Sex: Female
  Weight: 104.3273 kg

DRUGS (5)
  1. AVONEX [Suspect]
     Indication: MULTIPLE SCLEROSIS
     Dosage: 30 MCG QW IM
     Route: 030
     Dates: start: 20000101, end: 20021111
  2. AVONEX [Suspect]
     Indication: MULTIPLE SCLEROSIS
     Dosage: 30 MCG QW IM
     Route: 030
     Dates: start: 20030301, end: 20030401
  3. GLUCOVANCE [Concomitant]
  4. SYNTHROID [Concomitant]
  5. CORTICOSTEROID INJECTIONS [Concomitant]

REACTIONS (7)
  - BALANCE DISORDER [None]
  - CONCUSSION [None]
  - CONTUSION [None]
  - FALL [None]
  - HAEMOPTYSIS [None]
  - HEAD INJURY [None]
  - OSTEOARTHRITIS [None]
